FAERS Safety Report 25288766 (Version 6)
Quarter: 2025Q3

REPORT INFORMATION
  Report Type: Report from Study
  Country: BR (occurrence: BR)
  Receive Date: 20250509
  Receipt Date: 20250903
  Transmission Date: 20251021
  Serious: Yes (Hospitalization)
  Sender: ABBVIE
  Company Number: BR-JNJFOC-20250503245

PATIENT
  Age: 65 Year
  Sex: Female
  Weight: 65 kg

DRUGS (7)
  1. IBRUTINIB [Suspect]
     Active Substance: IBRUTINIB
     Indication: Lymphocytic lymphoma
     Dosage: 28 DAY CONTINUOUS CYCLE
     Route: 048
     Dates: start: 20240205, end: 20250322
  2. IBRUTINIB [Suspect]
     Active Substance: IBRUTINIB
     Indication: Lymphocytic lymphoma
     Dosage: 28 DAY CONTINUOUS CYCLE
     Route: 048
     Dates: start: 20250403, end: 20250407
  3. ASPIRIN [Concomitant]
     Active Substance: ASPIRIN
     Indication: Prophylaxis
  4. VITAMIN B12 [Concomitant]
     Active Substance: CYANOCOBALAMIN
     Indication: Vitamin B12 deficiency
     Dates: start: 202310
  5. METFORMIN [Concomitant]
     Active Substance: METFORMIN HYDROCHLORIDE
     Indication: Type 2 diabetes mellitus
     Dates: start: 2019
  6. OMEPRAZOLE [Concomitant]
     Active Substance: OMEPRAZOLE
     Indication: Prophylaxis
     Dates: start: 20250401
  7. ATORVASTATIN [Concomitant]
     Active Substance: ATORVASTATIN
     Indication: Dyslipidaemia
     Dates: start: 20250401

REACTIONS (5)
  - Fungaemia [Recovered/Resolved]
  - Encephalitis [Recovering/Resolving]
  - Headache [Recovered/Resolved with Sequelae]
  - Pneumonia [Recovering/Resolving]
  - Hypertension [Recovering/Resolving]

NARRATIVE: CASE EVENT DATE: 20250323
